FAERS Safety Report 13581839 (Version 1)
Quarter: 2017Q2

REPORT INFORMATION
  Report Type: Spontaneous
  Country: US (occurrence: US)
  Receive Date: 20170525
  Receipt Date: 20170525
  Transmission Date: 20170830
  Serious: Yes (Death, Hospitalization)
  Sender: FDA-Public Use
  Company Number: US-LPDUSPRD-20170666

PATIENT
  Age: 39 Year
  Sex: Female

DRUGS (5)
  1. VORICONAZOLE. [Concomitant]
     Active Substance: VORICONAZOLE
  2. ANTI-THYMOCYTE GLOBULIN (RABBIT) NOS [Suspect]
     Active Substance: LAPINE T-LYMPHOCYTE IMMUNE GLOBULIN
     Dates: start: 20141211
  3. CYCLOSPORINE INJECTION, USP (866-10) [Suspect]
     Active Substance: CYCLOSPORINE
     Route: 042
     Dates: start: 20141211
  4. AMPHOTERICIN B. [Concomitant]
     Active Substance: AMPHOTERICIN B
  5. POSACONAZOLE [Concomitant]
     Active Substance: POSACONAZOLE
     Dates: start: 20141224

REACTIONS (6)
  - Fungaemia [Unknown]
  - Respiratory failure [Unknown]
  - Pneumonia [Unknown]
  - Death [Fatal]
  - Escherichia bacteraemia [Unknown]
  - BK virus infection [Unknown]

NARRATIVE: CASE EVENT DATE: 2014
